FAERS Safety Report 9391360 (Version 2)
Quarter: 2013Q3

REPORT INFORMATION
  Report Type: Report from Study
  Country: JP (occurrence: JP)
  Receive Date: 20130709
  Receipt Date: 20130716
  Transmission Date: 20140515
  Serious: Yes (Hospitalization)
  Sender: FDA-Public Use
  Company Number: JP-ASTRAZENECA-2013SE50888

PATIENT
  Age: 26392 Day
  Sex: Male

DRUGS (27)
  1. CLEMASTINE FUMARATE [Concomitant]
     Indication: PHOTOSENSITIVITY REACTION
     Route: 048
     Dates: start: 20121011
  2. LYSOZYME HYDROCHLORIDE [Concomitant]
     Indication: PHOTOSENSITIVITY REACTION
     Route: 048
     Dates: start: 20121011
  3. NEOSTIGMINE METHYLSULFATE [Concomitant]
     Indication: ASTHENOPIA
     Route: 031
  4. DIPOTASSIUM GLYCYRRHIZATE [Concomitant]
     Indication: ASTHENOPIA
     Route: 031
  5. ASPARA POTASSIUM [Concomitant]
     Indication: HYPOKALAEMIA
     Route: 048
     Dates: end: 20130628
  6. ARTIST [Concomitant]
     Indication: CARDIAC FAILURE CHRONIC
     Route: 048
     Dates: end: 20130628
  7. MEDIQUICK [Concomitant]
     Indication: ECZEMA
     Route: 062
  8. DIHYDROCODEINE PHOSPHATE [Concomitant]
     Indication: PHOTOSENSITIVITY REACTION
     Route: 048
     Dates: start: 20121011
  9. ASA [Concomitant]
     Route: 048
     Dates: end: 20130628
  10. AZD6140 [Suspect]
     Indication: CORONARY ARTERY DISEASE
     Route: 048
     Dates: start: 20120626, end: 20130628
  11. AZD6140 [Suspect]
     Indication: CORONARY ARTERY DISEASE
     Route: 048
     Dates: start: 20130630
  12. ALLOZYM [Concomitant]
     Indication: HYPERURICAEMIA
     Route: 048
     Dates: start: 20120912, end: 20130628
  13. ANHYDROUS CAFFEINE [Concomitant]
     Indication: PHOTOSENSITIVITY REACTION
     Route: 048
     Dates: start: 20121011
  14. DL METHYLEPHEDRINE HYDROCHLORID [Concomitant]
     Indication: PHOTOSENSITIVITY REACTION
     Route: 048
     Dates: start: 20121011
  15. CHONDROITIN SULFATE SODIUM SALT [Concomitant]
     Indication: ASTHENOPIA
     Route: 031
  16. TIOSTAR [Concomitant]
     Indication: GASTRITIS PROPHYLAXIS
     Route: 048
     Dates: end: 20130628
  17. ACETAMINOPHEN [Concomitant]
     Indication: PHOTOSENSITIVITY REACTION
     Route: 048
     Dates: start: 20121011
  18. CHLORPHENIRAMINE MALEATE [Concomitant]
     Indication: ASTHENOPIA
     Route: 031
  19. ATORVASTATIN [Concomitant]
     Indication: DYSLIPIDAEMIA
     Route: 048
     Dates: end: 20130628
  20. FUROSEMIDE [Concomitant]
     Indication: CARDIAC FAILURE CONGESTIVE
     Route: 048
     Dates: end: 20130628
  21. GUAIACOL POTASSIUM SULFONATE [Concomitant]
     Indication: PHOTOSENSITIVITY REACTION
     Route: 048
     Dates: start: 20121011
  22. D-ALPHA-TOCOPHERYL ACETATE [Concomitant]
     Indication: ASTHENOPIA
     Route: 031
  23. ENALART [Concomitant]
     Indication: RENAL FAILURE CHRONIC
     Route: 048
     Dates: start: 20121110, end: 20130628
  24. BENFOTIAMINE [Concomitant]
     Indication: PHOTOSENSITIVITY REACTION
     Route: 048
     Dates: start: 20121011
  25. EPSILON-AMINOCAPROIC ACID [Concomitant]
     Indication: ASTHENOPIA
     Route: 031
  26. NOSCAPINE [Concomitant]
     Indication: PHOTOSENSITIVITY REACTION
     Route: 048
     Dates: start: 20121011
  27. TAURINE [Concomitant]
     Indication: ASTHENOPIA
     Route: 031

REACTIONS (1)
  - Intestinal obstruction [Recovered/Resolved]
